FAERS Safety Report 7812870-5 (Version None)
Quarter: 2011Q4

REPORT INFORMATION
  Report Type: 
  Country: None (occurrence: None)
  Receive Date: 20111011
  Receipt Date: 20110929
  Transmission Date: 20120403
  Serious: Yes (Other)
  Sender: FDA-Public Use
  Company Number: 2011SP042819

PATIENT
  Age: 25 Year
  Sex: Female
  Weight: 70 kg

DRUGS (9)
  1. RISPERIDONE [Concomitant]
  2. ZOPICLONE [Concomitant]
  3. VALPROIC ACID [Concomitant]
  4. THIORIDAZINE HCL [Concomitant]
  5. IMPLANON [Suspect]
     Indication: CONTRACEPTION
     Dosage: 68 MG;SBDE
     Route: 059
     Dates: start: 20110401
  6. TONARIL [Concomitant]
  7. PROPRANOLOL [Concomitant]
  8. LAMOTRIGINE [Concomitant]
  9. CHLORPROMAZINE [Concomitant]

REACTIONS (3)
  - TACHYCARDIA [None]
  - AGGRESSION [None]
  - AMENORRHOEA [None]
